FAERS Safety Report 4677766-9 (Version None)
Quarter: 2005Q2

REPORT INFORMATION
  Report Type: 
  Country: None (occurrence: None)
  Receive Date: 20050527
  Receipt Date: 20050527
  Transmission Date: 20051028
  Serious: No
  Sender: FDA-Public Use
  Company Number: None

PATIENT
  Sex: Male

DRUGS (9)
  1. NEURONTIN [Suspect]
     Indication: CONVULSION
     Dosage: 300 MG PO QID
     Route: 048
     Dates: start: 20011101
  2. NEURONTIN [Suspect]
     Indication: NEUROPATHY PERIPHERAL
     Dosage: 300 MG PO QID
     Route: 048
     Dates: start: 20011101
  3. NEURONTIN [Suspect]
     Indication: QUADRIPLEGIA
     Dosage: 300 MG PO QID
     Route: 048
     Dates: start: 20011101
  4. DIGOXIN [Concomitant]
  5. WARFARIN [Concomitant]
  6. DIAZEPAM [Concomitant]
  7. HYDROCODONE BITARTRATE [Concomitant]
  8. POTASSIUM CHLORIDE [Concomitant]
  9. PAXIL [Concomitant]

REACTIONS (4)
  - BLINDNESS [None]
  - CONFUSIONAL STATE [None]
  - DIZZINESS [None]
  - THERAPEUTIC RESPONSE UNEXPECTED WITH DRUG SUBSTITUTION [None]
